FAERS Safety Report 24363825 (Version 1)
Quarter: 2024Q3

REPORT INFORMATION
  Report Type: Spontaneous
  Country: FR (occurrence: FR)
  Receive Date: 20240925
  Receipt Date: 20240925
  Transmission Date: 20241017
  Serious: Yes (Other)
  Sender: EISAI
  Company Number: None

PATIENT
  Age: 85 Year
  Sex: Female

DRUGS (2)
  1. LENVIMA [Suspect]
     Active Substance: LENVATINIB
     Indication: Endometrial cancer
     Dosage: FREQUENCY UNKNOWN
     Route: 048
     Dates: start: 20221108, end: 20221221
  2. PEMBROLIZUMAB [Suspect]
     Active Substance: PEMBROLIZUMAB
     Indication: Endometrial cancer
     Route: 041
     Dates: start: 20221108

REACTIONS (9)
  - Localised oedema [Recovering/Resolving]
  - Anaemia [Recovering/Resolving]
  - C-reactive protein increased [Recovering/Resolving]
  - Hepatic cytolysis [Recovering/Resolving]
  - Hypoalbuminaemia [Recovering/Resolving]
  - Pain [Recovering/Resolving]
  - Decreased appetite [Recovering/Resolving]
  - Hypertension [Recovering/Resolving]
  - Asthenia [Recovering/Resolving]

NARRATIVE: CASE EVENT DATE: 20221110
